FAERS Safety Report 6127457-2 (Version None)
Quarter: 2009Q1

REPORT INFORMATION
  Report Type: 
  Country: None (occurrence: None)
  Receive Date: 20090323
  Receipt Date: 20090312
  Transmission Date: 20090719
  Serious: Yes (Hospitalization, Other)
  Sender: FDA-Public Use
  Company Number: PHHO2009GB02638

PATIENT
  Sex: Female
  Weight: 81.5 kg

DRUGS (3)
  1. ZOLEDRONIC ACID [Suspect]
     Indication: METASTASES TO BONE
     Dosage: 4 MG, UNK
     Route: 042
     Dates: start: 20040812, end: 20080207
  2. VITAMIN D [Concomitant]
  3. CALCIUM [Concomitant]

REACTIONS (5)
  - BETA HAEMOLYTIC STREPTOCOCCAL INFECTION [None]
  - CELLULITIS [None]
  - LIMB INJURY [None]
  - LYMPHOEDEMA [None]
  - TOOTH ABSCESS [None]
